FAERS Safety Report 17779947 (Version 2)
Quarter: 2020Q2

REPORT INFORMATION
  Report Type: Spontaneous
  Country: US (occurrence: US)
  Receive Date: 20200513
  Receipt Date: 20200619
  Transmission Date: 20200714
  Serious: Yes (Life-Threatening, Hospitalization)
  Sender: FDA-Public Use
  Company Number: US-ASTRAZENECA-2020SE61596

PATIENT
  Age: 15977 Day
  Sex: Female
  Weight: 83 kg

DRUGS (6)
  1. SALUMETEROL [Concomitant]
     Dosage: 125.0MG UNKNOWN
     Dates: start: 20200507
  2. FASENRA [Suspect]
     Active Substance: BENRALIZUMAB
     Indication: ASTHMA
     Dosage: 30.0MG UNKNOWN
     Route: 058
     Dates: start: 20200507, end: 20200507
  3. SPIRIVA [Concomitant]
     Active Substance: TIOTROPIUM BROMIDE MONOHYDRATE
  4. EPINEPHRINE. [Concomitant]
     Active Substance: EPINEPHRINE
     Dates: start: 20200507
  5. AIRDUO [Concomitant]
  6. BENADRYL [Concomitant]
     Active Substance: DIPHENHYDRAMINE HYDROCHLORIDE
     Dates: start: 20200507

REACTIONS (8)
  - Dyspnoea [Recovered/Resolved]
  - Chest discomfort [Unknown]
  - Respiratory arrest [Recovered/Resolved]
  - Cold sweat [Recovered/Resolved]
  - Mast cell activation syndrome [Unknown]
  - Loss of consciousness [Recovered/Resolved]
  - Wheezing [Unknown]
  - Blood pressure increased [Unknown]

NARRATIVE: CASE EVENT DATE: 20200507
